FAERS Safety Report 23960802 (Version 1)
Quarter: 2024Q2

REPORT INFORMATION
  Report Type: Spontaneous
  Country: US (occurrence: US)
  Receive Date: 20240611
  Receipt Date: 20240611
  Transmission Date: 20240716
  Serious: Yes (Hospitalization)
  Sender: FDA-Public Use
  Company Number: US-STRIDES ARCOLAB LIMITED-2023SP014684

PATIENT
  Age: 43 Year
  Sex: Male

DRUGS (14)
  1. TRAZODONE [Suspect]
     Active Substance: TRAZODONE HYDROCHLORIDE
     Indication: Insomnia
     Dosage: UNK
     Route: 065
  2. TRAZODONE [Suspect]
     Active Substance: TRAZODONE HYDROCHLORIDE
     Indication: Suicidal ideation
  3. ZOLPIDEM [Suspect]
     Active Substance: ZOLPIDEM TARTRATE
     Indication: Insomnia
     Dosage: UNK
     Route: 065
  4. ZOLPIDEM [Suspect]
     Active Substance: ZOLPIDEM TARTRATE
     Indication: Suicidal ideation
  5. BUPROPION [Suspect]
     Active Substance: BUPROPION
     Indication: Insomnia
     Dosage: UNK
     Route: 065
  6. BUPROPION [Suspect]
     Active Substance: BUPROPION
     Indication: Suicidal ideation
  7. LITHIUM [Suspect]
     Active Substance: LITHIUM
     Indication: Insomnia
     Dosage: UNK
     Route: 065
  8. LITHIUM [Suspect]
     Active Substance: LITHIUM
     Indication: Suicidal ideation
  9. KETAMINE [Suspect]
     Active Substance: KETAMINE
     Indication: Insomnia
     Dosage: UNK
     Route: 065
  10. KETAMINE [Suspect]
     Active Substance: KETAMINE
     Indication: Suicidal ideation
  11. VORTIOXETINE [Concomitant]
     Active Substance: VORTIOXETINE
     Indication: Insomnia
     Dosage: UNK
     Route: 065
  12. VORTIOXETINE [Concomitant]
     Active Substance: VORTIOXETINE
     Indication: Suicidal ideation
  13. QUETIAPINE [Concomitant]
     Active Substance: QUETIAPINE
     Indication: Insomnia
     Dosage: UNK
     Route: 065
  14. QUETIAPINE [Concomitant]
     Active Substance: QUETIAPINE
     Indication: Suicidal ideation

REACTIONS (2)
  - Treatment failure [Unknown]
  - Off label use [Unknown]
